FAERS Safety Report 8675955 (Version 4)
Quarter: 2012Q4

REPORT INFORMATION
  Report Type: 
  Country: AU (occurrence: AU)
  Receive Date: 20120720
  Receipt Date: 20120905
  Transmission Date: 20130627
  Serious: Yes (Other)
  Sender: FDA-Public Use
  Company Number: PHHY2012AU061899

PATIENT
  Sex: Female

DRUGS (4)
  1. TEGRETOL [Suspect]
     Indication: BIPOLAR DISORDER
     Dosage: 2 DF, BID
     Route: 048
  2. TEGRETOL [Suspect]
     Dosage: 3 DF, BID
  3. DIABEX S.R. [Concomitant]
     Indication: DIABETES MELLITUS
     Dosage: 1 g, QHS
     Dates: start: 201202
  4. VALIUM [Concomitant]
     Indication: SEDATIVE THERAPY
     Dosage: 5 mg, QHS
     Route: 048
     Dates: start: 201207

REACTIONS (5)
  - Feeling abnormal [Recovered/Resolved]
  - Panic attack [Recovered/Resolved]
  - Affective disorder [Recovered/Resolved]
  - Depression [Recovered/Resolved]
  - Product quality issue [None]
